FAERS Safety Report 9749354 (Version 1)
Quarter: 2013Q4

REPORT INFORMATION
  Report Type: Spontaneous
  Country: FR (occurrence: FR)
  Receive Date: 20131212
  Receipt Date: 20131212
  Transmission Date: 20140711
  Serious: Yes (Other)
  Sender: FDA-Public Use
  Company Number: FR-009507513-1312FRA001301

PATIENT
  Sex: Female

DRUGS (1)
  1. NEXPLANON [Suspect]
     Dosage: UNK
     Dates: start: 20130129

REACTIONS (3)
  - VIIth nerve paralysis [Unknown]
  - Device deployment issue [Not Recovered/Not Resolved]
  - Migraine [Unknown]
